FAERS Safety Report 7581827-4 (Version None)
Quarter: 2011Q2

REPORT INFORMATION
  Report Type: 
  Country: None (occurrence: None)
  Receive Date: 20110629
  Receipt Date: 20110620
  Transmission Date: 20111010
  Serious: Yes (Life-Threatening, Hospitalization, Other)
  Sender: FDA-Public Use
  Company Number: US-RB-029364-11

PATIENT
  Sex: Female

DRUGS (1)
  1. SUBOXONE [Suspect]
     Indication: DRUG DEPENDENCE
     Route: 060
     Dates: start: 20070101, end: 20110601

REACTIONS (2)
  - SUICIDE ATTEMPT [None]
  - DRUG WITHDRAWAL SYNDROME [None]
